FAERS Safety Report 4562677-X (Version None)
Quarter: 2005Q1

REPORT INFORMATION
  Report Type: 
  Country: None (occurrence: None)
  Receive Date: 20050124
  Receipt Date: 20050112
  Transmission Date: 20050727
  Serious: Yes (Life-Threatening, Other)
  Sender: FDA-Public Use
  Company Number: 2004116001

PATIENT
  Age: 55 Year
  Sex: Male
  Weight: 56 kg

DRUGS (4)
  1. GENOTROPIN [Suspect]
     Indication: HYPOPITUITARISM
     Dosage: 0.6 MG (0.6 MG, 1 IN 1
     Dates: start: 20020116
  2. HYDROCORTISONE [Concomitant]
  3. LEVOTHYROXINE [Concomitant]
  4. PRIMOTESTON-DEPOT (TESTOSTERONE ENANTATE, TESTOSTERONE PROPIONATE) [Concomitant]

REACTIONS (2)
  - RECTAL ABSCESS [None]
  - RECTAL CANCER [None]
